FAERS Safety Report 14225334 (Version 1)
Quarter: 2017Q4

REPORT INFORMATION
  Report Type: Spontaneous
  Country: US (occurrence: None)
  Receive Date: 20171122
  Receipt Date: 20171122
  Transmission Date: 20180321
  Serious: Yes (Hospitalization)
  Sender: FDA-Public Use
  Company Number: None

PATIENT
  Age: 9 Year
  Sex: Female

DRUGS (7)
  1. ZYRTEC [Concomitant]
     Active Substance: CETIRIZINE HYDROCHLORIDE
  2. TYLENOL [Concomitant]
     Active Substance: ACETAMINOPHEN
  3. ILARIS [Suspect]
     Active Substance: CANAKINUMAB
     Indication: JUVENILE IDIOPATHIC ARTHRITIS
     Dosage: 150MG/ML 1Q4W SUBQ
     Route: 058
     Dates: start: 20170914
  4. PREDNISONE. [Concomitant]
     Active Substance: PREDNISONE
  5. IRON [Concomitant]
     Active Substance: IRON
  6. VITAMIN D [Concomitant]
     Active Substance: CHOLECALCIFEROL
  7. HYDROCORTISONE. [Concomitant]
     Active Substance: HYDROCORTISONE

REACTIONS (1)
  - Arthritis [None]

NARRATIVE: CASE EVENT DATE: 20171118
